FAERS Safety Report 16836561 (Version 4)
Quarter: 2021Q3

REPORT INFORMATION
  Report Type: Spontaneous
  Country: JP (occurrence: JP)
  Receive Date: 20190921
  Receipt Date: 20210707
  Transmission Date: 20211014
  Serious: Yes (Hospitalization, Other)
  Sender: FDA-Public Use
  Company Number: JP-AMGEN-JPNSP2019154463

PATIENT
  Age: 56 Year
  Sex: Female
  Weight: 55 kg

DRUGS (11)
  1. AROMASIN [Concomitant]
     Active Substance: EXEMESTANE
     Dosage: 25 MG, QD
     Route: 048
     Dates: start: 20190704, end: 20190709
  2. AFINITOR [Suspect]
     Active Substance: EVEROLIMUS
     Indication: BREAST CANCER RECURRENT
     Dosage: 10 MG, QD
     Route: 048
     Dates: start: 20190227, end: 20190619
  3. PALBOCICLIB [Concomitant]
     Active Substance: PALBOCICLIB
     Dosage: UNK
     Route: 065
  4. AFINITOR [Suspect]
     Active Substance: EVEROLIMUS
     Dosage: 10 MG, QD
     Route: 048
     Dates: start: 20190704, end: 20190709
  5. CAPECITABINE. [Concomitant]
     Active Substance: CAPECITABINE
     Indication: BREAST CANCER RECURRENT
     Dosage: UNK
     Route: 065
  6. DENOTAS [Concomitant]
     Active Substance: CALCIUM CARBONATE\CHOLECALCIFEROL\MAGNESIUM CARBONATE
     Indication: METASTASES TO BONE
     Dosage: 2 DF, QD
     Route: 048
     Dates: start: 20140219, end: 20190719
  7. FERROUS SULFATE. [Concomitant]
     Active Substance: FERROUS SULFATE
     Indication: ANAEMIA
     Dosage: 50 MG, BID
     Route: 048
     Dates: start: 20190619
  8. RANMARK [Suspect]
     Active Substance: DENOSUMAB
     Indication: METASTASES TO BONE
     Dosage: 120 MG, ONCE EVERY 4 WK
     Route: 058
     Dates: start: 20130306, end: 20190619
  9. FULVESTRANT. [Concomitant]
     Active Substance: FULVESTRANT
     Indication: BREAST CANCER RECURRENT
     Dosage: UNK
     Route: 065
  10. AROMASIN [Concomitant]
     Active Substance: EXEMESTANE
     Indication: BREAST CANCER RECURRENT
     Dosage: 25 MG, QD
     Route: 048
     Dates: start: 20190227, end: 20190619
  11. CIPROXAN [CIPROFLOXACIN HYDROCHLORIDE] [Concomitant]
     Active Substance: CIPROFLOXACIN HYDROCHLORIDE
     Indication: PYREXIA
     Dosage: 400 MG, TID
     Route: 048
     Dates: start: 20190604, end: 20190609

REACTIONS (4)
  - Osteomyelitis [Recovered/Resolved]
  - Anaemia [Unknown]
  - Metastases to chest wall [Unknown]
  - Metastases to skin [Unknown]

NARRATIVE: CASE EVENT DATE: 20190703
